APPROVED DRUG PRODUCT: NITROGLYCERIN
Active Ingredient: NITROGLYCERIN
Strength: 0.3MG
Dosage Form/Route: TABLET;SUBLINGUAL
Application: A207745 | Product #001
Applicant: SIGMAPHARM LABORATORIES LLC
Approved: May 7, 2018 | RLD: No | RS: No | Type: DISCN